FAERS Safety Report 4269338-5 (Version None)
Quarter: 2004Q1

REPORT INFORMATION
  Report Type: 
  Country: None (occurrence: None)
  Receive Date: 20040112
  Receipt Date: 20040112
  Transmission Date: 20041129
  Serious: Yes (Hospitalization)
  Sender: FDA-Public Use
  Company Number: None

PATIENT
  Age: 75 Year
  Sex: Male

DRUGS (11)
  1. WARFARIN [Suspect]
     Indication: ATRIAL FIBRILLATION
     Dosage: 7.5 MG QD
  2. FELODIPINE [Suspect]
     Dosage: 20 MG QD
  3. APAP TAB [Concomitant]
  4. FLEXERIL [Concomitant]
  5. BENADRYL [Concomitant]
  6. FOLIC ACID [Concomitant]
  7. LEVOTHYIOXINE [Concomitant]
  8. METOPROLOL [Concomitant]
  9. RABEPRAZOLE SODIUM [Concomitant]
  10. SIMVASTATIN [Concomitant]
  11. TRAZODONE HCL [Concomitant]

REACTIONS (2)
  - INTERNATIONAL NORMALISED RATIO INCREASED [None]
  - OEDEMA PERIPHERAL [None]
